FAERS Safety Report 9422522 (Version 1)
Quarter: 2013Q3

REPORT INFORMATION
  Report Type: Spontaneous
  Country: US (occurrence: None)
  Receive Date: 20130725
  Receipt Date: 20130725
  Transmission Date: 20140515
  Serious: No
  Sender: FDA-Public Use
  Company Number: None

PATIENT
  Age: 65 Year
  Sex: Male

DRUGS (7)
  1. VORICONAZOLE [Suspect]
     Indication: BRONCHOPULMONARY ASPERGILLOSIS
     Dates: start: 20120411, end: 20120605
  2. ACETYLSALICYLIC ACID [Concomitant]
  3. AMLODIPINE W/BENAZEPRIL [Concomitant]
  4. FLUTICASONE W/S ALMETEROL [Concomitant]
  5. IBUPROFEN [Concomitant]
  6. OMEPRAZOLE [Concomitant]
  7. SALBUTAMOL [Concomitant]

REACTIONS (1)
  - Cholecystitis acute [None]
